FAERS Safety Report 22308303 (Version 1)
Quarter: 2023Q2

REPORT INFORMATION
  Report Type: Spontaneous
  Country: US (occurrence: US)
  Receive Date: 20230511
  Receipt Date: 20230511
  Transmission Date: 20230721
  Serious: No
  Sender: FDA-Public Use
  Company Number: US-ELI_LILLY_AND_COMPANY-US202305005496

PATIENT
  Sex: Female

DRUGS (1)
  1. OLUMIANT [Suspect]
     Active Substance: BARICITINIB
     Indication: Dermatitis atopic
     Dosage: 2 MG, DAILY
     Route: 048
     Dates: start: 202304

REACTIONS (4)
  - Migraine [Unknown]
  - Vision blurred [Unknown]
  - Confusional state [Unknown]
  - Aphasia [Unknown]
